FAERS Safety Report 12994618 (Version 2)
Quarter: 2016Q4

REPORT INFORMATION
  Report Type: Report from Study
  Country: IE (occurrence: IE)
  Receive Date: 20161202
  Receipt Date: 20161213
  Transmission Date: 20170207
  Serious: Yes (Hospitalization, Other)
  Sender: FDA-Public Use
  Company Number: PHFR2016IE009484

PATIENT
  Age: 68 Year
  Sex: Female

DRUGS (16)
  1. TEVETEN [Concomitant]
     Active Substance: EPROSARTAN MESYLATE
     Indication: PRODUCT USED FOR UNKNOWN INDICATION
     Dosage: UNK
     Route: 065
     Dates: end: 20150402
  2. DELTACORTRIL [Concomitant]
     Active Substance: PREDNISOLONE
     Indication: PRODUCT USED FOR UNKNOWN INDICATION
     Dosage: 5 MG, QD
     Route: 048
     Dates: start: 20070921
  3. PROTIUM [Concomitant]
     Indication: GASTROINTESTINAL DISORDER
     Dosage: 40 MG, QD
     Route: 048
     Dates: start: 20151022
  4. CALCICHEW [Concomitant]
     Active Substance: CALCIUM CARBONATE
     Indication: OSTEOPOROSIS
     Dosage: 1 DF, QD (500 MG + 400 UNITS)
     Route: 048
     Dates: start: 20150218
  5. CALOGEN [Concomitant]
     Indication: PRODUCT USED FOR UNKNOWN INDICATION
     Dosage: 30 ML, TID
     Route: 048
     Dates: start: 20161122
  6. FLU VACCINE VII [Concomitant]
     Active Substance: INFLUENZA VIRUS VACCINE
     Indication: PRODUCT USED FOR UNKNOWN INDICATION
     Dosage: UNK
     Route: 065
     Dates: start: 20151027, end: 20161011
  7. ULTIBRO BREEZHALER [Suspect]
     Active Substance: GLYCOPYRRONIUM\INDACATEROL
     Indication: CHRONIC OBSTRUCTIVE PULMONARY DISEASE
     Dosage: 1 DF, UNK
     Route: 055
     Dates: start: 20150218
  8. FORADIL [Concomitant]
     Active Substance: FORMOTEROL FUMARATE
     Indication: PRODUCT USED FOR UNKNOWN INDICATION
     Dosage: 12 UG, UNK (AS DIRECTED)
     Route: 055
     Dates: start: 20070529
  9. ERDOTIN [Concomitant]
     Active Substance: ERDOSTEINE
     Indication: PRODUCT USED FOR UNKNOWN INDICATION
     Dosage: 300 MG, BID
     Route: 048
     Dates: start: 20150218
  10. SALAMOL [Concomitant]
     Active Substance: ALBUTEROL
     Indication: PRODUCT USED FOR UNKNOWN INDICATION
     Dosage: 100 UG, UNK (AS DIRECTED)
     Route: 048
     Dates: start: 20070529
  11. GERAX [Concomitant]
     Indication: PRODUCT USED FOR UNKNOWN INDICATION
     Dosage: 1 MG, QD
     Route: 048
     Dates: start: 20150218
  12. FLIXOTIDE [Concomitant]
     Active Substance: FLUTICASONE PROPIONATE
     Indication: PRODUCT USED FOR UNKNOWN INDICATION
     Dosage: 50 UG, BID
     Route: 048
     Dates: start: 20150218
  13. PROLIA [Concomitant]
     Active Substance: DENOSUMAB
     Indication: PRODUCT USED FOR UNKNOWN INDICATION
     Dosage: UNK
     Route: 058
     Dates: start: 20150414
  14. ZOPITAN [Concomitant]
     Indication: PRODUCT USED FOR UNKNOWN INDICATION
     Dosage: 7.5 MG, QD
     Route: 048
     Dates: start: 20160705
  15. ZITHROMAX [Concomitant]
     Active Substance: AZITHROMYCIN DIHYDRATE
     Indication: PRODUCT USED FOR UNKNOWN INDICATION
     Dosage: 250 MG, QD
     Route: 048
     Dates: start: 20151022
  16. CRESTOR [Concomitant]
     Active Substance: ROSUVASTATIN CALCIUM
     Indication: PRODUCT USED FOR UNKNOWN INDICATION
     Dosage: 10 MG, QD
     Route: 048
     Dates: start: 20061215

REACTIONS (13)
  - Panic reaction [Unknown]
  - Gastritis [Unknown]
  - Tachycardia [Unknown]
  - Anxiety [Unknown]
  - Respiratory failure [Unknown]
  - Hypokalaemia [Unknown]
  - Hypotension [Unknown]
  - Wheezing [Unknown]
  - Duodenal ulcer perforation [Unknown]
  - Back pain [Unknown]
  - Tachypnoea [Unknown]
  - Duodenitis [Unknown]
  - Dyspnoea [Unknown]

NARRATIVE: CASE EVENT DATE: 20150402
